FAERS Safety Report 4966926-5 (Version None)
Quarter: 2006Q2

REPORT INFORMATION
  Report Type: 
  Country: None (occurrence: None)
  Receive Date: 20060407
  Receipt Date: 20030605
  Transmission Date: 20061013
  Serious: Yes (Hospitalization, Other)
  Sender: FDA-Public Use
  Company Number: US-MERCK-0306USA00780

PATIENT
  Age: 73 Year
  Sex: Male
  Weight: 73 kg

DRUGS (15)
  1. VIOXX [Suspect]
     Indication: ARTHRITIS
     Route: 048
     Dates: start: 20001122, end: 20040901
  2. PREVACID [Concomitant]
     Indication: GASTROOESOPHAGEAL REFLUX DISEASE
     Route: 065
  3. AMITRIPTYLINE HYDROCHLORIDE [Concomitant]
     Route: 048
  4. ATENOLOL [Concomitant]
     Route: 048
  5. ATENOLOL [Concomitant]
     Route: 048
  6. NITROQUICK [Concomitant]
     Route: 060
  7. ASPIRIN [Concomitant]
     Route: 065
  8. LIPITOR [Concomitant]
     Route: 048
  9. ZANTAC [Concomitant]
     Route: 048
  10. PLAVIX [Concomitant]
     Route: 065
     Dates: start: 20010416
  11. AMARYL [Concomitant]
     Route: 065
  12. BAYCOL [Concomitant]
     Route: 065
  13. PRAVACHOL [Concomitant]
     Route: 065
  14. AMBIEN [Concomitant]
     Route: 065
  15. ACETAMINOPHEN AND HYDROCODONE BITARTRATE [Concomitant]
     Route: 065

REACTIONS (38)
  - ANAEMIA [None]
  - ANGINA PECTORIS [None]
  - ARTHRALGIA [None]
  - BASAL CELL CARCINOMA [None]
  - BLOOD PRESSURE INCREASED [None]
  - BRONCHITIS [None]
  - BUNDLE BRANCH BLOCK LEFT [None]
  - CAROTID ARTERY STENOSIS [None]
  - CARPAL TUNNEL SYNDROME [None]
  - CHEST PAIN [None]
  - COLON CANCER [None]
  - CONVULSION [None]
  - CORONARY ARTERY DISEASE [None]
  - DIVERTICULUM [None]
  - DIZZINESS [None]
  - DRUG ABUSER [None]
  - DYSPHAGIA [None]
  - DYSPNOEA [None]
  - GASTRIC DISORDER [None]
  - HIATUS HERNIA [None]
  - INTESTINAL OBSTRUCTION [None]
  - LIMB DISCOMFORT [None]
  - LOSS OF CONSCIOUSNESS [None]
  - MYOCARDIAL INFARCTION [None]
  - OESOPHAGITIS [None]
  - OSTEOARTHRITIS [None]
  - POLYP [None]
  - POST PROCEDURAL HAEMATOMA [None]
  - PROSTATITIS [None]
  - RENAL CYST [None]
  - RETROGRADE EJACULATION [None]
  - ROAD TRAFFIC ACCIDENT [None]
  - ROTATOR CUFF SYNDROME [None]
  - SEBORRHOEIC KERATOSIS [None]
  - SHOULDER PAIN [None]
  - SYNCOPE [None]
  - TINNITUS [None]
  - URINARY RETENTION [None]
